FAERS Safety Report 7402867-1 (Version None)
Quarter: 2011Q2

REPORT INFORMATION
  Report Type: 
  Country: None (occurrence: None)
  Receive Date: 20110408
  Receipt Date: 20110401
  Transmission Date: 20111010
  Serious: Yes (Other)
  Sender: FDA-Public Use
  Company Number: US-AMGEN-USASP2011017776

PATIENT
  Sex: Male

DRUGS (1)
  1. NEUPOGEN [Suspect]
     Dosage: UNK
     Route: 064
     Dates: end: 20020416

REACTIONS (2)
  - AUTISM [None]
  - PREMATURE BABY [None]
